FAERS Safety Report 7916540 (Version 3)
Quarter: 2014Q2

REPORT INFORMATION
  Report Type: Spontaneous
  Country: US (occurrence: US)
  Receive Date: 20110427
  Receipt Date: 20140508
  Transmission Date: 20141212
  Serious: Yes (Hospitalization, Other)
  Sender: FDA-Public Use
  Company Number: PHHY2011US32570

PATIENT
  Age: 63 Year
  Sex: Female

DRUGS (28)
  1. TOBI [Suspect]
     Dosage: 300 MG/ 5ML,ONE AMPOULE BID 28 DAYS ON AND 28 DAYS OFF
     Route: 055
     Dates: start: 2001
  2. SULFAMETHOXAZOLE TABLETS USP [Suspect]
     Dosage: UNK UKN, UNK
  3. PROTONIX [Suspect]
     Dosage: UNK UKN, UNK
  4. SKELAXIN [Suspect]
     Dosage: UNK UKN, UNK
  5. VIOXX [Suspect]
     Dosage: UNK UKN, UNK
  6. QVAR [Concomitant]
     Dosage: UNK UKN, UNK
  7. DUONEB [Concomitant]
     Dosage: UNK UKN, UNK
  8. ALBUTEROL [Concomitant]
     Dosage: UNK UKN, UNK
  9. XOPENEX [Concomitant]
     Dosage: UNK UKN, UNK
  10. THEOPHYLLINE [Concomitant]
     Dosage: UNK UKN, UNK
  11. ASTELIN [Concomitant]
     Dosage: UNK UKN, UNK
  12. DIPHENHYDRAMINE [Concomitant]
     Dosage: UNK UKN, UNK
  13. MISOPROSTOL [Concomitant]
     Dosage: UNK UKN, UNK
  14. FLEXERIL [Concomitant]
     Dosage: UNK UKN, UNK
  15. NAPROXEN SODIUM [Concomitant]
     Dosage: UNK UKN, UNK
  16. BUTALBITAL, ACETAMINOPHEN + CAFFEINE [Concomitant]
     Dosage: UNK UKN, UNK
  17. ACIPHEX [Concomitant]
     Dosage: UNK UKN, UNK
  18. BONIVA [Concomitant]
     Dosage: UNK UKN, UNK
  19. PATANOL [Concomitant]
     Dosage: UNK UKN, UNK
  20. VITAMIN D [Concomitant]
     Dosage: UNK UKN, UNK
  21. VITAMIN E [Concomitant]
     Dosage: UNK UKN, UNK
  22. VITAMIN C [Concomitant]
     Dosage: UNK UKN, UNK
  23. IRON [Concomitant]
     Dosage: 325 MG, BID
  24. ACIDOPHILUS ^ZYMA^ [Concomitant]
     Dosage: UNK UKN, UNK
  25. ALPHA LIPOIC ACID [Concomitant]
     Dosage: 100 MG, UNK
  26. CALCIUM [Concomitant]
     Dosage: 1000 MG, UNK
  27. MAGNESIUM [Concomitant]
     Dosage: 400 MG, UNK
  28. PREDNISONE [Concomitant]
     Dosage: UNK UKN, UNK

REACTIONS (15)
  - Gastric ulcer haemorrhage [Unknown]
  - Amnesia [Unknown]
  - Cerebrovascular accident [Unknown]
  - Speech disorder [Unknown]
  - Anaemia [Recovering/Resolving]
  - Myocardial infarction [Unknown]
  - Insomnia [Unknown]
  - Confusional state [Unknown]
  - Aphasia [Unknown]
  - Fatigue [Unknown]
  - Abdominal pain upper [Unknown]
  - Tinnitus [Unknown]
  - Urticaria [Unknown]
  - Nausea [Unknown]
  - Dyspnoea [Unknown]
